FAERS Safety Report 8792975 (Version 2)
Quarter: 2012Q4

REPORT INFORMATION
  Report Type: Report from Study
  Country: BE (occurrence: BE)
  Receive Date: 20120918
  Receipt Date: 20121127
  Transmission Date: 20130627
  Serious: Yes (Hospitalization, Other)
  Sender: FDA-Public Use
  Company Number: BE-ABBOTT-12P-013-0978225-00

PATIENT
  Age: 52 None
  Sex: Female

DRUGS (4)
  1. HUMIRA [Suspect]
     Indication: ANKYLOSING SPONDYLITIS
     Dates: start: 200709, end: 201202
  2. HUMIRA [Suspect]
     Dates: start: 201205
  3. IBUPROFEN [Concomitant]
     Indication: PRODUCT USED FOR UNKNOWN INDICATION
     Dosage: 1 ? 2 times a day
  4. ZALDIAR [Concomitant]
     Indication: PRODUCT USED FOR UNKNOWN INDICATION

REACTIONS (6)
  - Localised intraabdominal fluid collection [Unknown]
  - Intestinal perforation [Recovered/Resolved]
  - Gastroenteritis Escherichia coli [Recovered/Resolved]
  - Abdominal pain lower [Unknown]
  - Pelvic inflammatory disease [Unknown]
  - Purulent discharge [Unknown]
